FAERS Safety Report 4909189-9 (Version None)
Quarter: 2006Q1

REPORT INFORMATION
  Report Type: 
  Country: None (occurrence: None)
  Receive Date: 20060213
  Receipt Date: 20060202
  Transmission Date: 20060701
  Serious: Yes (Hospitalization)
  Sender: FDA-Public Use
  Company Number: CH-AVENTIS-200611015GDDC

PATIENT
  Age: 61 Year
  Sex: Male

DRUGS (2)
  1. MINIRIN [Suspect]
     Indication: HYPOPITUITARISM
     Route: 045
     Dates: end: 20050922
  2. LEVOTHYROXINE SODIUM [Concomitant]
     Indication: HYPOPITUITARISM
     Route: 048

REACTIONS (6)
  - CONFUSIONAL STATE [None]
  - HYPONATRAEMIA [None]
  - OVERDOSE [None]
  - POLLAKIURIA [None]
  - TRI-IODOTHYRONINE ABNORMAL [None]
  - VOMITING [None]
